FAERS Safety Report 9202564 (Version 3)
Quarter: 2013Q2

REPORT INFORMATION
  Report Type: Spontaneous
  Country: US (occurrence: US)
  Receive Date: 20130401
  Receipt Date: 20130409
  Transmission Date: 20140414
  Serious: Yes (Death, Hospitalization)
  Sender: FDA-Public Use
  Company Number: US-ACTELION-A-US2013-81314

PATIENT
  Age: 67 Year
  Sex: Male

DRUGS (7)
  1. VENTAVIS [Suspect]
     Indication: PULMONARY ARTERIAL HYPERTENSION
     Dosage: 5 MCG,
     Route: 055
     Dates: start: 20130220
  2. VENTAVIS [Suspect]
     Dosage: UNK
     Route: 055
  3. SILDENAFIL [Concomitant]
  4. LETAIRIS [Concomitant]
  5. QVAR [Concomitant]
  6. IPRATROPIUM [Concomitant]
  7. WARFARIN [Concomitant]

REACTIONS (3)
  - Death [Fatal]
  - Asthma [Unknown]
  - Dyspnoea [Unknown]
